FAERS Safety Report 17486725 (Version 2)
Quarter: 2020Q2

REPORT INFORMATION
  Report Type: Report from Study
  Country: CA (occurrence: CA)
  Receive Date: 20200303
  Receipt Date: 20200519
  Transmission Date: 20200713
  Serious: Yes (Other)
  Sender: FDA-Public Use
  Company Number: CA-ROCHE-2557818

PATIENT
  Age: 31 Year
  Sex: Female

DRUGS (20)
  1. DEXILANT [Concomitant]
     Active Substance: DEXLANSOPRAZOLE
     Route: 048
  2. MEPRON [Concomitant]
     Active Substance: ATOVAQUONE
     Route: 065
     Dates: start: 20200422
  3. PULMICORT TURBUHALER [Concomitant]
     Active Substance: BUDESONIDE
     Route: 055
  4. EURO D [Concomitant]
     Dosage: 10000  IU INTERNATIONAL UNIT(S)
     Route: 048
  5. MIRTAZAPINE. [Concomitant]
     Active Substance: MIRTAZAPINE
     Dosage: HALF OF 15 MG AT BEDTIME
     Route: 048
  6. PREDNISONE. [Concomitant]
     Active Substance: PREDNISONE
     Route: 048
  7. LOESTRIN NOS [Concomitant]
     Active Substance: ETHINYL ESTRADIOL\NORETHINDRONE ACETATE
     Route: 048
  8. VENLAFAXINE [Concomitant]
     Active Substance: VENLAFAXINE HYDROCHLORIDE
     Route: 048
  9. CELLCEPT [Suspect]
     Active Substance: MYCOPHENOLATE MOFETIL\MYCOPHENOLATE MOFETIL HYDROCHLORIDE
     Indication: PRODUCT USED FOR UNKNOWN INDICATION
     Route: 048
  10. SALBUTAMOL [Concomitant]
     Active Substance: ALBUTEROL
     Dosage: TWO INHALATIONS FOUR TIMES DAILY; AS REQUIR?DOSE: 200 MG MICROGRAM(S)
     Route: 055
  11. CYCLEN [Concomitant]
     Active Substance: ETHINYL ESTRADIOL\NORGESTIMATE
     Dosage: 0.035-0.25 MG;TAKE 21 DAYS AND REST 7
     Route: 048
  12. NEBUSAL [Concomitant]
     Active Substance: SODIUM CHLORIDE
     Route: 055
  13. CALCIUM [Concomitant]
     Active Substance: CALCIUM
     Route: 048
  14. SOLU-MEDROL [Concomitant]
     Active Substance: METHYLPREDNISOLONE SODIUM SUCCINATE
     Indication: PREMEDICATION
     Route: 042
     Dates: start: 20200504
  15. TYLENOL [Concomitant]
     Active Substance: ACETAMINOPHEN
     Indication: PREMEDICATION
     Route: 048
     Dates: start: 20200504
  16. BENADRYL [Concomitant]
     Active Substance: DIPHENHYDRAMINE HYDROCHLORIDE
     Indication: PREMEDICATION
     Route: 048
     Dates: start: 20200504
  17. RITUXAN [Suspect]
     Active Substance: RITUXIMAB
     Indication: HEPATIC FIBROSIS
  18. AZITHROMYCIN ANHYDROUS. [Concomitant]
     Active Substance: AZITHROMYCIN ANHYDROUS
     Route: 048
  19. NEBUSAL [Concomitant]
     Active Substance: SODIUM CHLORIDE
     Dosage: NEBULIZER
     Route: 055
  20. RITUXAN [Suspect]
     Active Substance: RITUXIMAB
     Indication: IMMUNODEFICIENCY
     Route: 042
     Dates: start: 20200504

REACTIONS (4)
  - Heart rate increased [Unknown]
  - Intentional product use issue [Unknown]
  - Off label use [Unknown]
  - Hepatic fibrosis [Unknown]

NARRATIVE: CASE EVENT DATE: 20200504
